FAERS Safety Report 25023238 (Version 1)
Quarter: 2025Q1

REPORT INFORMATION
  Report Type: Spontaneous
  Country: RO (occurrence: RO)
  Receive Date: 20250228
  Receipt Date: 20250228
  Transmission Date: 20250408
  Serious: Yes (Hospitalization)
  Sender: MERCK SHARP & DOHME LLC
  Company Number: None

PATIENT
  Age: 4 Year
  Sex: Male

DRUGS (2)
  1. M-M-RVAXPRO [Suspect]
     Active Substance: MEASLES VIRUS STRAIN ENDERS^ ATTENUATED EDMONSTON LIVE ANTIGEN\MUMPS VIRUS STRAIN B LEVEL JERYL LYNN
     Indication: Measles immunisation
     Route: 065
  2. STERILE DILUENT (WATER) [Suspect]
     Active Substance: WATER
     Indication: Measles immunisation
     Route: 065

REACTIONS (1)
  - Measles [Unknown]

NARRATIVE: CASE EVENT DATE: 20250101
